FAERS Safety Report 7955177-8 (Version None)
Quarter: 2011Q4

REPORT INFORMATION
  Report Type: 
  Country: None (occurrence: None)
  Receive Date: 20111202
  Receipt Date: 20111123
  Transmission Date: 20120403
  Serious: Yes (Other)
  Sender: FDA-Public Use
  Company Number: PHFR2011GB006766

PATIENT
  Sex: Female

DRUGS (2)
  1. VALPROATE SODIUM [Concomitant]
  2. TRILEPTAL [Suspect]

REACTIONS (2)
  - THYROID DISORDER [None]
  - OEDEMA PERIPHERAL [None]
